FAERS Safety Report 4408836-8 (Version None)
Quarter: 2004Q3

REPORT INFORMATION
  Report Type: 
  Country: None (occurrence: None)
  Receive Date: 20040727
  Receipt Date: 20040723
  Transmission Date: 20050211
  Serious: Yes (Life-Threatening)
  Sender: FDA-Public Use
  Company Number: PHBS2004JP09791

PATIENT
  Age: 12 Day

DRUGS (1)
  1. DIOVAN [Suspect]
     Route: 064

REACTIONS (6)
  - DRUG EXPOSURE DURING PREGNANCY [None]
  - HYPOTENSION [None]
  - NEONATAL ASPHYXIA [None]
  - PULMONARY APLASIA [None]
  - RESUSCITATION [None]
  - SKULL MALFORMATION [None]
